FAERS Safety Report 25226955 (Version 1)
Quarter: 2025Q2

REPORT INFORMATION
  Report Type: Spontaneous
  Country: US (occurrence: US)
  Receive Date: 20250422
  Receipt Date: 20250422
  Transmission Date: 20250717
  Serious: Yes (Hospitalization)
  Sender: ELI LILLY AND COMPANY
  Company Number: US-ELI_LILLY_AND_COMPANY-US202504011430

PATIENT
  Age: 61 Year
  Sex: Female

DRUGS (2)
  1. FORTEO [Suspect]
     Active Substance: TERIPARATIDE
     Indication: Product used for unknown indication
     Route: 065
     Dates: start: 202404
  2. FORTEO [Suspect]
     Active Substance: TERIPARATIDE
     Indication: Product used for unknown indication
     Route: 065
     Dates: start: 202404

REACTIONS (7)
  - Ear pain [Unknown]
  - Hypothyroidism [Recovered/Resolved]
  - Fatigue [Unknown]
  - Pain in jaw [Unknown]
  - Aphonia [Not Recovered/Not Resolved]
  - Incorrect dose administered by device [Unknown]
  - Nausea [Unknown]

NARRATIVE: CASE EVENT DATE: 20240101
